FAERS Safety Report 14991000 (Version 1)
Quarter: 2018Q2

REPORT INFORMATION
  Report Type: Spontaneous
  Country: PL (occurrence: PL)
  Receive Date: 20180608
  Receipt Date: 20180608
  Transmission Date: 20180711
  Serious: Yes (Hospitalization)
  Sender: FDA-Public Use
  Company Number: PL-FRESENIUS KABI-FK201806618

PATIENT
  Age: 57 Year
  Sex: Male
  Weight: 85 kg

DRUGS (2)
  1. PACLITAXEL (MANUFACTURER UNKNOWN) [Suspect]
     Active Substance: PACLITAXEL
     Indication: NEOPLASM MALIGNANT
     Route: 042
     Dates: start: 20131119
  2. CARBOPLATIN. [Suspect]
     Active Substance: CARBOPLATIN
     Indication: NEOPLASM MALIGNANT
     Route: 042
     Dates: start: 20131119

REACTIONS (2)
  - Agranulocytosis [Recovering/Resolving]
  - Febrile neutropenia [Recovering/Resolving]

NARRATIVE: CASE EVENT DATE: 20131202
